FAERS Safety Report 13742073 (Version 1)
Quarter: 2017Q3

REPORT INFORMATION
  Report Type: Spontaneous
  Country: FR (occurrence: FR)
  Receive Date: 20170711
  Receipt Date: 20170711
  Transmission Date: 20171127
  Serious: Yes (Other)
  Sender: FDA-Public Use
  Company Number: PHHY2010FR40357

PATIENT
  Age: 78 Year
  Sex: Female

DRUGS (4)
  1. CARTEOL [Concomitant]
     Active Substance: CARTEOLOL
     Indication: OCULAR HYPERTENSION
     Dosage: 1 % SINGLE DOSE UNITS SINCE 14 YEARS
  2. CARTEOL [Concomitant]
     Active Substance: CARTEOLOL
     Dosage: 1 % SINGLE DOSE UNITS SINCE 1 YEAR
  3. CARTEOLOL (NVO) [Suspect]
     Active Substance: CARTEOLOL HYDROCHLORIDE
     Indication: OCULAR HYPERTENSION
     Dosage: 1 GTT, QD SINCE 10 DAYS
     Route: 047
     Dates: start: 201005
  4. CARTEOL [Concomitant]
     Active Substance: CARTEOLOL
     Dosage: 1 % SINGLE DOSE UNITS

REACTIONS (2)
  - Peripheral coldness [Unknown]
  - Condition aggravated [Unknown]

NARRATIVE: CASE EVENT DATE: 201005
